FAERS Safety Report 5608053-X (Version None)
Quarter: 2008Q1

REPORT INFORMATION
  Report Type: 
  Country: None (occurrence: None)
  Receive Date: 20080114
  Receipt Date: 20071218
  Transmission Date: 20080703
  Serious: No
  Sender: FDA-Public Use
  Company Number: DL2007437

PATIENT
  Age: 31 Year
  Sex: Female

DRUGS (5)
  1. MIFEPRISTONE TABLETS, 200 MG (DANCO LABS) [Suspect]
     Indication: ABORTION INDUCED
     Dosage: 200 MG, ORAL
     Route: 048
     Dates: start: 20071101
  2. MISOPROSTOL [Suspect]
     Dosage: 800 MCG, BUCCAL;  600 MCG ORAL FOR 3 DAYS
     Route: 002
     Dates: start: 20071102
  3. MISOPROSTOL [Suspect]
     Dosage: 800 MCG, BUCCAL;  600 MCG ORAL FOR 3 DAYS
     Route: 002
     Dates: start: 20071117
  4. MISOPROSTOL [Suspect]
     Dosage: 800 MCG, BUCCAL;  600 MCG ORAL FOR 3 DAYS
     Route: 002
     Dates: start: 20071118
  5. MISOPROSTOL [Suspect]
     Dosage: 800 MCG, BUCCAL;  600 MCG ORAL FOR 3 DAYS
     Route: 002
     Dates: start: 20071119

REACTIONS (1)
  - ABORTION INCOMPLETE [None]
